FAERS Safety Report 7688137-5 (Version None)
Quarter: 2011Q3

REPORT INFORMATION
  Report Type: 
  Country: None (occurrence: None)
  Receive Date: 20110817
  Receipt Date: 20110809
  Transmission Date: 20111222
  Serious: Yes (Life-Threatening, Hospitalization)
  Sender: FDA-Public Use
  Company Number: LT-SANOFI-AVENTIS-2011SA050987

PATIENT
  Age: 82 Year
  Sex: Female
  Weight: 70 kg

DRUGS (2)
  1. ALCOHOL [Interacting]
     Indication: ALCOHOL USE
     Route: 048
  2. ZOLPIDEM [Suspect]
     Route: 048
     Dates: start: 20110714, end: 20110714

REACTIONS (2)
  - ALCOHOL INTERACTION [None]
  - COMA [None]
